FAERS Safety Report 14198825 (Version 1)
Quarter: 2017Q4

REPORT INFORMATION
  Report Type: Spontaneous
  Country: US (occurrence: None)
  Receive Date: 20171117
  Receipt Date: 20171117
  Transmission Date: 20180321
  Serious: Yes (Death, Hospitalization)
  Sender: FDA-Public Use
  Company Number: None

PATIENT
  Age: 57 Year
  Sex: Male

DRUGS (12)
  1. VITAMIN C [Concomitant]
     Active Substance: ASCORBIC ACID
  2. CARVEDILOL. [Concomitant]
     Active Substance: CARVEDILOL
  3. FUROSEMIDE. [Concomitant]
     Active Substance: FUROSEMIDE
  4. ZOCOR [Concomitant]
     Active Substance: SIMVASTATIN
  5. CLOBETASOL PROPPIONATE CREAM 0.05% HI [Suspect]
     Active Substance: CLOBETASOL PROPIONATE
     Indication: PSORIASIS
     Dosage: FREQUENCY - 2 TIMES DAILY EVERY OTHER DAY FOR BOTH MEDICATION/ROTATE
     Route: 061
     Dates: start: 20150225, end: 20150228
  6. CALCIPOTRIENE CREAM 0.005% [Suspect]
     Active Substance: CALCIPOTRIENE
  7. LANTUS [Concomitant]
     Active Substance: INSULIN GLARGINE
  8. LEVOTHYROXINE (SYNTHROID, LEVOTHROID) [Concomitant]
  9. SPIRONOLACTONE (ALDACTONE) [Concomitant]
  10. LOSARTAN (COZAAR) [Concomitant]
  11. ASPIRIN CHEWABLE [Concomitant]
     Active Substance: ASPIRIN
  12. MULTIVITAMINS [Concomitant]
     Active Substance: VITAMINS

REACTIONS (3)
  - Infection [None]
  - Sepsis [None]
  - Chemical burn [None]

NARRATIVE: CASE EVENT DATE: 2015
